FAERS Safety Report 8377053-1 (Version None)
Quarter: 2012Q2

REPORT INFORMATION
  Report Type: 
  Country: None (occurrence: None)
  Receive Date: 20120521
  Receipt Date: 20120510
  Transmission Date: 20120825
  Serious: Yes (Other)
  Sender: FDA-Public Use
  Company Number: ADR-2012-00905

PATIENT
  Sex: Female

DRUGS (2)
  1. LIORESAL [Suspect]
     Indication: CEREBRAL PALSY
     Dosage: 500MCG/ML/DAY
  2. LIORESAL [Suspect]
     Indication: MUSCLE SPASTICITY
     Dosage: 500MCG/ML/DAY

REACTIONS (4)
  - IMPLANT SITE SWELLING [None]
  - PYREXIA [None]
  - ABDOMINAL PAIN [None]
  - IMPLANT SITE EFFUSION [None]
